FAERS Safety Report 21018943 (Version 1)
Quarter: 2022Q2

REPORT INFORMATION
  Report Type: Spontaneous
  Country: US (occurrence: US)
  Receive Date: 20220628
  Receipt Date: 20220628
  Transmission Date: 20220720
  Serious: No
  Sender: FDA-Public Use
  Company Number: US-MIMS-CORIMC-868

PATIENT
  Age: 26 Year
  Sex: Female

DRUGS (2)
  1. AZSTARYS [Suspect]
     Active Substance: DEXMETHYLPHENIDATE HYDROCHLORIDE\SERDEXMETHYLPHENIDATE CHLORIDE
     Indication: Attention deficit hyperactivity disorder
     Dosage: 26.1 MG/5.2 MG DAILY
     Route: 048
     Dates: start: 20220402
  2. AZSTARYS [Suspect]
     Active Substance: DEXMETHYLPHENIDATE HYDROCHLORIDE\SERDEXMETHYLPHENIDATE CHLORIDE
     Indication: Attention deficit hyperactivity disorder
     Dosage: 39.2 MG/7.8 MG DAILY
     Route: 048
     Dates: start: 2022, end: 2022

REACTIONS (3)
  - Malaise [Unknown]
  - Abdominal pain upper [Unknown]
  - Drug ineffective [Unknown]
